FAERS Safety Report 19973405 (Version 1)
Quarter: 2021Q4

REPORT INFORMATION
  Report Type: Spontaneous
  Country: US (occurrence: US)
  Receive Date: 20211020
  Receipt Date: 20211020
  Transmission Date: 20220303
  Serious: Yes (Other)
  Sender: FDA-Public Use
  Company Number: None

PATIENT
  Age: 64 Year
  Sex: Female
  Weight: 76.05 kg

DRUGS (1)
  1. PEMAZYRE [Suspect]
     Active Substance: PEMIGATINIB
     Indication: Cholangiocarcinoma
     Dosage: ?          OTHER FREQUENCY:ONCE DAILY FOR 14;
     Route: 048
     Dates: start: 20210830

REACTIONS (5)
  - Calcinosis [None]
  - Fibrosis [None]
  - Dermatitis [None]
  - Skin mass [None]
  - Skin hypertrophy [None]
